FAERS Safety Report 13639272 (Version 1)
Quarter: 2017Q2

REPORT INFORMATION
  Report Type: Spontaneous
  Country: US (occurrence: US)
  Receive Date: 20170609
  Receipt Date: 20170609
  Transmission Date: 20170830
  Serious: No
  Sender: FDA-Public Use
  Company Number: US-ROCHE-1087023

PATIENT
  Age: 50 Year
  Sex: Female

DRUGS (2)
  1. KLONOPIN [Suspect]
     Active Substance: CLONAZEPAM
     Dosage: THERAPY RESTARTED
     Route: 048
  2. KLONOPIN [Suspect]
     Active Substance: CLONAZEPAM
     Indication: ANXIETY DISORDER
     Route: 048

REACTIONS (3)
  - Drug withdrawal syndrome [Recovering/Resolving]
  - Alcohol poisoning [Not Recovered/Not Resolved]
  - Alcohol use [Unknown]
